FAERS Safety Report 9874434 (Version 1)
Quarter: 2014Q1

REPORT INFORMATION
  Report Type: Spontaneous
  Country: US (occurrence: US)
  Receive Date: 20140206
  Receipt Date: 20140206
  Transmission Date: 20141002
  Serious: Yes (Hospitalization, Other)
  Sender: FDA-Public Use
  Company Number: US-BIOGENIDEC-2014BI011266

PATIENT
  Age: 36 Year
  Sex: Female
  Weight: 119 kg

DRUGS (9)
  1. AVONEX [Suspect]
     Indication: RELAPSING-REMITTING MULTIPLE SCLEROSIS
     Route: 030
  2. BUTORPHANOL [Concomitant]
     Route: 045
  3. CYMBALTA [Concomitant]
     Route: 048
  4. DEPAKOTE ER [Concomitant]
     Route: 048
  5. DEPAKOTE ER [Concomitant]
     Route: 048
  6. DEPO-PROVERA [Concomitant]
     Route: 030
  7. FIORICET [Concomitant]
     Route: 048
  8. SEROQUEL [Concomitant]
     Route: 048
  9. ZOLOFT [Concomitant]

REACTIONS (6)
  - Hip arthroplasty [Unknown]
  - Multiple sclerosis relapse [Unknown]
  - Tremor [Unknown]
  - Memory impairment [Unknown]
  - Migraine [Unknown]
  - Spinal osteoarthritis [Unknown]
